FAERS Safety Report 6942820-5 (Version None)
Quarter: 2010Q3

REPORT INFORMATION
  Report Type: 
  Country: None (occurrence: None)
  Receive Date: 20100826
  Receipt Date: 20100812
  Transmission Date: 20110219
  Serious: Yes (Other)
  Sender: FDA-Public Use
  Company Number: BR-MEDIMMUNE-MEDI-0010142

PATIENT
  Sex: Male
  Weight: 9.4 kg

DRUGS (4)
  1. SYNAGIS [Suspect]
     Indication: CARDIAC DISORDER
     Dates: end: 20090801
  2. DOMPERIDONE [Concomitant]
     Route: 048
     Dates: start: 20090225
  3. RANITIDINE HYDROCHLORIDE [Concomitant]
     Route: 048
     Dates: start: 20090225
  4. CALIAMOM [Concomitant]
     Route: 048

REACTIONS (6)
  - ANAEMIA [None]
  - APHASIA [None]
  - DEVELOPMENTAL DELAY [None]
  - GROWTH RETARDATION [None]
  - PARALYSIS [None]
  - WHEEZING [None]
